FAERS Safety Report 20301042 (Version 2)
Quarter: 2022Q1

REPORT INFORMATION
  Report Type: Report from Study
  Country: CN (occurrence: CN)
  Receive Date: 20220105
  Receipt Date: 20220113
  Transmission Date: 20220423
  Serious: Yes (Hospitalization, Other)
  Sender: FDA-Public Use
  Company Number: CN-TAKEDA-2022TUS000321

PATIENT
  Age: 31 Year
  Sex: Male

DRUGS (3)
  1. ADVATE [Suspect]
     Active Substance: ANTIHEMOPHILIC FACTOR, HUMAN RECOMBINANT
     Indication: Factor VIII deficiency
     Dosage: 3500 INTERNATIONAL UNIT, QD
     Route: 042
     Dates: start: 20211018, end: 20211021
  2. ADVATE [Suspect]
     Active Substance: ANTIHEMOPHILIC FACTOR, HUMAN RECOMBINANT
     Indication: Factor VIII deficiency
     Dosage: 3500 INTERNATIONAL UNIT, QD
     Route: 042
     Dates: start: 20211018, end: 20211021
  3. ADVATE [Suspect]
     Active Substance: ANTIHEMOPHILIC FACTOR, HUMAN RECOMBINANT
     Indication: Factor VIII deficiency
     Dosage: 3500 INTERNATIONAL UNIT, QD
     Route: 042
     Dates: start: 20211018, end: 20211021

REACTIONS (2)
  - Joint arthroplasty [Not Recovered/Not Resolved]
  - Factor VIII inhibition [Not Recovered/Not Resolved]

NARRATIVE: CASE EVENT DATE: 20211218
